FAERS Safety Report 25239517 (Version 2)
Quarter: 2025Q2

REPORT INFORMATION
  Report Type: Spontaneous
  Country: CO (occurrence: CO)
  Receive Date: 20250425
  Receipt Date: 20250529
  Transmission Date: 20250717
  Serious: Yes (Hospitalization)
  Sender: ESTEVE
  Company Number: CO-Esteve Pharmaceuticals SA-2175589

PATIENT
  Age: 25 Year
  Sex: Female
  Weight: 40 kg

DRUGS (17)
  1. LYSODREN [Suspect]
     Active Substance: MITOTANE
     Indication: Adrenocortical carcinoma
     Dates: start: 20240830, end: 20250406
  2. LEVOTHYROXINE [Concomitant]
     Active Substance: LEVOTHYROXINE
  3. PREGABALIN [Concomitant]
     Active Substance: PREGABALIN
  4. ROSUVASTATIN [Concomitant]
     Active Substance: ROSUVASTATIN
  5. FLUDROCORTISONE [Concomitant]
     Active Substance: FLUDROCORTISONE
  6. LACTULOSE [Concomitant]
     Active Substance: LACTULOSE
  7. APIXABAN [Concomitant]
     Active Substance: APIXABAN
  8. FLUOXETINE [Concomitant]
     Active Substance: FLUOXETINE HYDROCHLORIDE
  9. PREDNISOLONE [Concomitant]
     Active Substance: PREDNISOLONE
  10. CALCITRIOL [Concomitant]
     Active Substance: CALCITRIOL
  11. CALCIUM CARBONATE WITH VITAMIN D (CHOLECALCIFEROL) [Concomitant]
     Active Substance: CALCIUM CARBONATE\CHOLECALCIFEROL
  12. ONDANSETRON [Concomitant]
     Active Substance: ONDANSETRON
  13. HYDROMORPHONE [Concomitant]
     Active Substance: HYDROMORPHONE
  14. CALCIUM CARBONATE [Concomitant]
     Active Substance: CALCIUM CARBONATE
  15. SPIRONOLACTONE [Concomitant]
     Active Substance: SPIRONOLACTONE
  16. AMLODIPINE [Concomitant]
     Active Substance: AMLODIPINE BESYLATE
  17. LOSARTAN [Concomitant]
     Active Substance: LOSARTAN

REACTIONS (1)
  - Pneumonia bacterial [Not Recovered/Not Resolved]
